FAERS Safety Report 10884076 (Version 3)
Quarter: 2015Q2

REPORT INFORMATION
  Report Type: Spontaneous
  Country: DZ (occurrence: None)
  Receive Date: 20150227
  Receipt Date: 20150626
  Transmission Date: 20150821
  Serious: Yes (Death)
  Sender: FDA-Public Use
  Company Number: 2015DZ0079

PATIENT
  Age: 1 Year
  Sex: Female

DRUGS (1)
  1. ORFADIN [Suspect]
     Active Substance: NITISINONE
     Indication: TYROSINAEMIA
     Dates: start: 20140508

REACTIONS (5)
  - Peripheral artery aneurysm [None]
  - Hepatic cirrhosis [None]
  - Hepatocellular carcinoma [None]
  - Portal hypertension [None]
  - Infection [None]

NARRATIVE: CASE EVENT DATE: 201410
